FAERS Safety Report 6186012-9 (Version None)
Quarter: 2009Q2

REPORT INFORMATION
  Report Type: 
  Country: None (occurrence: None)
  Receive Date: 20090507
  Receipt Date: 20090417
  Transmission Date: 20091009
  Serious: Yes (Other)
  Sender: FDA-Public Use
  Company Number: PRA1-2009-00010

PATIENT
  Age: 16 Year
  Sex: Female
  Weight: 45.5 kg

DRUGS (3)
  1. 489 (LISDEXAMFETAMINE DIMESYLATE) [Suspect]
     Indication: ATTENTION DEFICIT/HYPERACTIVITY DISORDER
     Dosage: 70 MG, 1X/DAY;QD, ORAL
     Route: 048
     Dates: start: 20090403, end: 20090422
  2. 489 (LISDEXAMFETAMINE DIMESYLATE) [Suspect]
     Indication: ATTENTION DEFICIT/HYPERACTIVITY DISORDER
     Dosage: 70 MG, 1X/DAY;QD, ORAL
     Route: 048
     Dates: start: 20090321
  3. IBUPROFEN [Concomitant]

REACTIONS (2)
  - DYSMENORRHOEA [None]
  - SYNCOPE [None]
